FAERS Safety Report 8222059-6 (Version None)
Quarter: 2012Q1

REPORT INFORMATION
  Report Type: 
  Country: None (occurrence: None)
  Receive Date: 20120320
  Receipt Date: 20120313
  Transmission Date: 20120608
  Serious: Yes (Other)
  Sender: FDA-Public Use
  Company Number: JP-VERTEX PHARMACEUTICALS INC.-AE-2012-000006

PATIENT
  Age: 63 Year
  Sex: Female

DRUGS (5)
  1. TELAVIC (TELAPREVIR) [Suspect]
     Indication: HEPATITIS C
     Route: 048
     Dates: start: 20111212, end: 20111222
  2. REBETOL [Concomitant]
     Indication: HEPATITIS C
     Route: 048
     Dates: start: 20111212, end: 20111226
  3. PEGINTERFERON ALFA-2B [Concomitant]
     Indication: HEPATITIS C
     Route: 051
     Dates: start: 20111212
  4. TELAVIC (TELAPREVIR) [Suspect]
     Route: 048
     Dates: start: 20120117
  5. REBETOL [Concomitant]
     Route: 048
     Dates: start: 20120110

REACTIONS (4)
  - ANAEMIA [None]
  - RENAL DISORDER [None]
  - RASH PAPULAR [None]
  - DECREASED APPETITE [None]
